FAERS Safety Report 16778807 (Version 1)
Quarter: 2019Q3

REPORT INFORMATION
  Report Type: Spontaneous
  Country: BE (occurrence: BE)
  Receive Date: 20190906
  Receipt Date: 20190906
  Transmission Date: 20191005
  Serious: Yes (Other)
  Sender: FDA-Public Use
  Company Number: BE-EMD SERONO-E2B_90070491

PATIENT
  Age: 75 Year
  Sex: Male

DRUGS (4)
  1. SIMVASTATINE [Suspect]
     Active Substance: SIMVASTATIN
     Indication: PROPHYLAXIS
  2. L THYROXINE [Suspect]
     Active Substance: LEVOTHYROXINE SODIUM
     Indication: THROMBOPHLEBITIS
  3. ATENOLOL. [Suspect]
     Active Substance: ATENOLOL
     Indication: PRODUCT USED FOR UNKNOWN INDICATION
  4. METFORMIN [Suspect]
     Active Substance: METFORMIN HYDROCHLORIDE
     Indication: PRODUCT USED FOR UNKNOWN INDICATION

REACTIONS (1)
  - Pulmonary fibrosis [Unknown]
